FAERS Safety Report 9190523 (Version 1)
Quarter: 2013Q1

REPORT INFORMATION
  Report Type: Spontaneous
  Country: CA (occurrence: CA)
  Receive Date: 20130326
  Receipt Date: 20130326
  Transmission Date: 20140127
  Serious: Yes (Other)
  Sender: FDA-Public Use
  Company Number: CA-PFIZER INC-2013092796

PATIENT
  Age: 38 Year
  Sex: Male

DRUGS (2)
  1. CYTARABINE [Suspect]
     Indication: BONE MARROW CONDITIONING REGIMEN
     Dosage: 5,800 MG, EVERY 12 H
     Route: 042
  2. PREDNISOLONE [Concomitant]
     Indication: DRUG TOXICITY PROPHYLAXIS
     Dosage: FOUR TIMES DAILY

REACTIONS (3)
  - Toxicity to various agents [Recovered/Resolved]
  - Corneal epithelial microcysts [Recovered/Resolved]
  - Eye irritation [Recovered/Resolved]
